FAERS Safety Report 4879529-8 (Version None)
Quarter: 2006Q1

REPORT INFORMATION
  Report Type: 
  Country: None (occurrence: None)
  Receive Date: 20060111
  Receipt Date: 20051228
  Transmission Date: 20060701
  Serious: Yes (Hospitalization)
  Sender: FDA-Public Use
  Company Number: 006#3#2005-00060

PATIENT
  Age: 73 Year
  Sex: Male

DRUGS (4)
  1. CORDIPATCH-DOSE-UNKNOWN (GLYCERYL TRINITRATE) [Suspect]
     Indication: ANGINA PECTORIS
     Dosage: 1.N.R.; TRANSDERMAL
     Route: 062
     Dates: end: 20051114
  2. ASPIRIN [Concomitant]
  3. ISDEDYL FORT (DIHYDROERGOCRISTINE MESILATE, RAUBASINE) [Concomitant]
  4. PLAVIX [Concomitant]

REACTIONS (4)
  - CEREBRAL HAEMATOMA [None]
  - FALL [None]
  - HAEMORRHAGE INTRACRANIAL [None]
  - HEAD INJURY [None]
